FAERS Safety Report 6466215-6 (Version None)
Quarter: 2009Q4

REPORT INFORMATION
  Report Type: 
  Country: None (occurrence: None)
  Receive Date: 20091202
  Receipt Date: 20091119
  Transmission Date: 20100525
  Serious: Yes (Other)
  Sender: FDA-Public Use
  Company Number: PHHY2009JP39100

PATIENT
  Sex: Male

DRUGS (3)
  1. DIOVAN [Suspect]
     Indication: HYPERTENSION
     Dosage: 80 MG/DAY
     Route: 048
     Dates: start: 20071001
  2. LIPITOR [Concomitant]
     Dosage: 5 MG, UNK
     Route: 048
     Dates: start: 20060909
  3. ALLOPURINOL [Concomitant]
     Dosage: 400 MG, UNK
     Route: 048
     Dates: start: 20060909

REACTIONS (2)
  - ACCIDENTAL EXPOSURE [None]
  - OROPHARYNGEAL DISCOMFORT [None]
